FAERS Safety Report 7340777-9 (Version None)
Quarter: 2011Q1

REPORT INFORMATION
  Report Type: 
  Country: None (occurrence: None)
  Receive Date: 20110301
  Receipt Date: 20110215
  Transmission Date: 20110831
  Serious: Yes (Other)
  Sender: FDA-Public Use
  Company Number: 2011AP000212

PATIENT
  Age: 21 Month
  Sex: Male

DRUGS (10)
  1. CYCLOPHOSPHAMIDE [Concomitant]
  2. ANTITHYMOCYTE IMMUNOGLOBULIN [Concomitant]
  3. METHOTREXATE [Suspect]
     Indication: PROPHYLAXIS AGAINST GRAFT VERSUS HOST DISEASE
  4. MYCOPHENOLATE MOFETIL [Suspect]
     Indication: PROPHYLAXIS AGAINST GRAFT VERSUS HOST DISEASE
  5. TACROLIMUS [Suspect]
     Indication: PROPHYLAXIS AGAINST GRAFT VERSUS HOST DISEASE
  6. BUSULFAN [Concomitant]
  7. DAUNORUBICIN HCL [Concomitant]
  8. CYTARABINE [Concomitant]
  9. ETOPOSIDE [Concomitant]
  10. CYCLOSPORINE [Suspect]
     Indication: PROPHYLAXIS AGAINST GRAFT VERSUS HOST DISEASE
     Dosage: QD

REACTIONS (3)
  - MICROANGIOPATHY [None]
  - ACUTE RESPIRATORY DISTRESS SYNDROME [None]
  - ENDOTHELIAL DYSFUNCTION [None]
